FAERS Safety Report 7375200-1 (Version None)
Quarter: 2011Q1

REPORT INFORMATION
  Report Type: 
  Country: None (occurrence: None)
  Receive Date: 20110325
  Receipt Date: 20110318
  Transmission Date: 20110831
  Serious: Yes (Other)
  Sender: FDA-Public Use
  Company Number: GB-ROCHE-766677

PATIENT
  Age: 47 Year
  Sex: Female

DRUGS (7)
  1. DIAZEPAM [Interacting]
     Route: 065
  2. LACOSAMIDE [Interacting]
     Dosage: 1 MONTH LATER LACOSAMIDE WAS 200 MG/DAY
     Route: 065
  3. LEVETIRACETAM [Interacting]
     Route: 065
  4. LACOSAMIDE [Interacting]
     Route: 065
  5. OXCARBAZEPINE [Interacting]
     Route: 065
  6. CLONAZEPAM [Suspect]
     Route: 065
  7. OXCARBAZEPINE [Interacting]
     Dosage: OXCARBAZEPINE DOSE WAS DECREASED
     Route: 065

REACTIONS (6)
  - VERTIGO [None]
  - DRUG LEVEL DECREASED [None]
  - ATAXIA [None]
  - NEUROTOXICITY [None]
  - DRUG INTERACTION [None]
  - DIPLOPIA [None]
